FAERS Safety Report 6734005-2 (Version None)
Quarter: 2010Q2

REPORT INFORMATION
  Report Type: 
  Country: None (occurrence: None)
  Receive Date: 20100518
  Receipt Date: 20100503
  Transmission Date: 20101027
  Serious: Yes (Other)
  Sender: FDA-Public Use
  Company Number: 232178J10USA

PATIENT
  Age: 53 Year
  Sex: Female

DRUGS (7)
  1. REBIF [Suspect]
     Indication: MULTIPLE SCLEROSIS
     Dosage: 44 MCG, 3 IN 1 WK, SUBCUTANEOUS; 44 MCG, 1 IN 1 WK, SUBCUTANEOUS
     Route: 058
     Dates: start: 20070901, end: 20090101
  2. REBIF [Suspect]
     Indication: MULTIPLE SCLEROSIS
     Dosage: 44 MCG, 3 IN 1 WK, SUBCUTANEOUS; 44 MCG, 1 IN 1 WK, SUBCUTANEOUS
     Route: 058
     Dates: start: 20090101, end: 20100401
  3. REBIF [Suspect]
     Indication: MULTIPLE SCLEROSIS
     Dosage: 44 MCG, 3 IN 1 WK, SUBCUTANEOUS; 44 MCG, 1 IN 1 WK, SUBCUTANEOUS
     Route: 058
     Dates: start: 20100401
  4. NAPROXEN [Concomitant]
  5. ZOCOR [Concomitant]
  6. FOSAMAX [Concomitant]
  7. HORMONE PATCH (HORMONES NOS) [Concomitant]

REACTIONS (2)
  - MYELOFIBROSIS [None]
  - WHITE BLOOD CELL COUNT DECREASED [None]
